FAERS Safety Report 8828660 (Version 1)
Quarter: 2012Q4

REPORT INFORMATION
  Report Type: 
  Country: US (occurrence: US)
  Receive Date: 20121005
  Receipt Date: 20121005
  Transmission Date: 20130627
  Serious: Yes (Death, Hospitalization)
  Sender: FDA-Public Use
  Company Number: US-BRISTOL-MYERS SQUIBB COMPANY-16762130

PATIENT
  Age: 53 Year
  Sex: Male

DRUGS (2)
  1. ORENCIA [Suspect]
     Indication: RHEUMATOID ARTHRITIS
     Dosage: No of inf:7; Last inf:25Aug2012
     Route: 042
     Dates: start: 201202
  2. PREDNISONE [Concomitant]

REACTIONS (3)
  - Renal disorder [Fatal]
  - Fatigue [Unknown]
  - Abdominal pain [Unknown]
